FAERS Safety Report 24398761 (Version 1)
Quarter: 2024Q4

REPORT INFORMATION
  Report Type: Spontaneous
  Country: US (occurrence: US)
  Receive Date: 20241004
  Receipt Date: 20241004
  Transmission Date: 20250115
  Serious: Yes (Hospitalization)
  Sender: APELLIS PHARMACEUTICALS
  Company Number: US-APELLIS-2024-APL-0001114

PATIENT

DRUGS (1)
  1. EMPAVELI [Suspect]
     Active Substance: PEGCETACOPLAN
     Indication: Product used for unknown indication
     Dosage: 1080 MG SUBCUTANEOUS 3 TIMES PER WEEK
     Route: 058

REACTIONS (3)
  - Anaemia [Unknown]
  - Urinary tract infection [Unknown]
  - Off label use [Unknown]
